FAERS Safety Report 9502601 (Version 1)
Quarter: 2013Q3

REPORT INFORMATION
  Report Type: Spontaneous
  Country: US (occurrence: US)
  Receive Date: 20130906
  Receipt Date: 20130906
  Transmission Date: 20140515
  Serious: Yes (Other)
  Sender: FDA-Public Use
  Company Number: US-JNJFOC-20130901395

PATIENT
  Age: 18 Year
  Sex: Male
  Weight: 68.04 kg

DRUGS (7)
  1. INVEGA [Suspect]
     Indication: PRODUCT USED FOR UNKNOWN INDICATION
     Route: 048
     Dates: start: 20130523
  2. PROZAC [Concomitant]
     Indication: DEPRESSION
     Route: 048
     Dates: start: 20130523
  3. ZYRTEC [Concomitant]
     Indication: MULTIPLE ALLERGIES
     Route: 065
  4. FLONASE [Concomitant]
     Indication: MULTIPLE ALLERGIES
     Route: 065
  5. SYNTHROID [Concomitant]
     Indication: HYPOTHYROIDISM
     Dosage: HALF TABLET
     Route: 065
  6. MINOCYCLINE [Concomitant]
     Indication: ACNE
     Route: 048
     Dates: start: 2012
  7. MELATONIN [Concomitant]
     Indication: SLEEP DISORDER
     Route: 065

REACTIONS (4)
  - Fungal infection [Unknown]
  - Myalgia [Recovered/Resolved]
  - Dysphagia [Recovered/Resolved]
  - Musculoskeletal stiffness [Recovered/Resolved]
